FAERS Safety Report 18569562 (Version 6)
Quarter: 2021Q2

REPORT INFORMATION
  Report Type: Spontaneous
  Country: CO (occurrence: CO)
  Receive Date: 20201202
  Receipt Date: 20210519
  Transmission Date: 20210717
  Serious: Yes (Other)
  Sender: FDA-Public Use
  Company Number: CO-PFIZER INC-2020471143

PATIENT
  Age: 64 Year
  Sex: Male

DRUGS (1)
  1. SUTENT [Suspect]
     Active Substance: SUNITINIB MALATE
     Indication: RENAL CANCER
     Dosage: 50 MG, CYCLIC (DAILY FOR 28 DAYS THEN REST FOR 15 DAYS)
     Route: 048
     Dates: start: 20200311, end: 20201111

REACTIONS (6)
  - Weight increased [Unknown]
  - Renal injury [Unknown]
  - Gait disturbance [Unknown]
  - Renal disorder [Not Recovered/Not Resolved]
  - Memory impairment [Unknown]
  - Product dose omission in error [Unknown]

NARRATIVE: CASE EVENT DATE: 2020
